FAERS Safety Report 9275327 (Version 1)
Quarter: 2013Q2

REPORT INFORMATION
  Report Type: Spontaneous
  Country: IE (occurrence: None)
  Receive Date: 20130430
  Receipt Date: 20130430
  Transmission Date: 20140414
  Serious: Yes (Other)
  Sender: FDA-Public Use
  Company Number: IE-MACLEODS PHARMA-000087

PATIENT
  Age: 52 Year
  Sex: Female

DRUGS (6)
  1. PRAMIPEXOLE [Suspect]
     Indication: PARKINSON^S DISEASE
     Dosage: 0.18MG-1.0DAYS/
  2. STALEVO(STALEVO) [Concomitant]
  3. AMANTADINE(AMANTADINE) [Concomitant]
  4. SELEGILINE(SELEGILINE) [Concomitant]
  5. ALPRAZOLAM(ALPRAZOLAM) (ALPRAZOLAM) [Concomitant]
  6. ESCITALOPRAM(ESCITALOP RAM) [Concomitant]

REACTIONS (12)
  - Impulse-control disorder [None]
  - Disinhibition [None]
  - Sexual dysfunction [None]
  - Depressed mood [None]
  - Crying [None]
  - Decreased appetite [None]
  - Anhedonia [None]
  - Poisoning deliberate [None]
  - Marital problem [None]
  - Hypersexuality [None]
  - Unevaluable event [None]
  - Economic problem [None]
